FAERS Safety Report 25473616 (Version 2)
Quarter: 2025Q2

REPORT INFORMATION
  Report Type: Report from Study
  Country: FR (occurrence: FR)
  Receive Date: 20250624
  Receipt Date: 20250627
  Transmission Date: 20250717
  Serious: Yes (Other)
  Sender: ABBVIE
  Company Number: FR-ABBVIE-6131730

PATIENT
  Age: 78 Year
  Sex: Female
  Weight: 52 kg

DRUGS (6)
  1. FOSCARBIDOPA\FOSLEVODOPA [Suspect]
     Active Substance: FOSCARBIDOPA\FOSLEVODOPA
     Indication: Parkinson^s disease
     Dosage: BASE FLOW 0.5 ML/H DURATION 16. HOURS IN MORNING AND AFTERNOON?LOW ALTERNATING FLOW 0.3 ML/H DURA...
     Route: 058
     Dates: start: 20241211, end: 20241218
  2. FOSCARBIDOPA\FOSLEVODOPA [Suspect]
     Active Substance: FOSCARBIDOPA\FOSLEVODOPA
     Dosage: BASE FLOW 0.4 ML/H DURATION 16. HOURS IN MORNING AND AFTERNOON?LOW ALTERNATING FLOW 0.3 ML/H DURA...
     Route: 058
     Dates: start: 20241218, end: 20250121
  3. FOSCARBIDOPA\FOSLEVODOPA [Suspect]
     Active Substance: FOSCARBIDOPA\FOSLEVODOPA
     Dosage: BASE FLOW 0.45 ML/H DURATION 16. HOURS IN MORNING AND AFTERNOON?LOW ALTERNATING FLOW 0.4 ML/H DUR...
     Route: 058
     Dates: start: 20250121
  4. CARBIDOPA AND LEVODOPA [Concomitant]
     Active Substance: CARBIDOPA\LEVODOPA
     Indication: Parkinson^s disease
     Dates: start: 20090601, end: 20241212
  5. MIDODRINE [Concomitant]
     Active Substance: MIDODRINE
     Indication: Parkinson^s disease
  6. TIMOLOL\TRAVOPROST [Concomitant]
     Active Substance: TIMOLOL\TRAVOPROST
     Indication: Parkinson^s disease

REACTIONS (5)
  - Living in residential institution [Not Recovered/Not Resolved]
  - Hallucination [Recovered/Resolved]
  - Injection site erythema [Not Recovered/Not Resolved]
  - Injection site pain [Not Recovered/Not Resolved]
  - Hallucination [Not Recovered/Not Resolved]

NARRATIVE: CASE EVENT DATE: 20241221
